FAERS Safety Report 6137028-X (Version None)
Quarter: 2009Q1

REPORT INFORMATION
  Report Type: 
  Country: None (occurrence: None)
  Receive Date: 20090330
  Receipt Date: 20090323
  Transmission Date: 20090719
  Serious: Yes (Hospitalization)
  Sender: FDA-Public Use
  Company Number: US-ELI_LILLY_AND_COMPANY-US200901004750

PATIENT
  Age: 77 Year
  Sex: Female

DRUGS (2)
  1. FORTEO [Suspect]
     Indication: OSTEOPOROSIS
  2. LOPRESSOR [Concomitant]

REACTIONS (4)
  - ARRHYTHMIA [None]
  - INJECTION SITE HAEMATOMA [None]
  - INJECTION SITE VESICLES [None]
  - PALPITATIONS [None]
